FAERS Safety Report 8734945 (Version 2)
Quarter: 2013Q2

REPORT INFORMATION
  Report Type: Spontaneous
  Country: US (occurrence: US)
  Receive Date: 20120821
  Receipt Date: 20130409
  Transmission Date: 20140414
  Serious: Yes (Hospitalization)
  Sender: FDA-Public Use
  Company Number: PHHY2012US070628

PATIENT
  Age: 53 Year
  Sex: Male

DRUGS (1)
  1. METRONIDAZOLE [Suspect]
     Indication: NON-ALCOHOLIC STEATOHEPATITIS

REACTIONS (3)
  - Oromandibular dystonia [Recovering/Resolving]
  - Toxic encephalopathy [Recovering/Resolving]
  - Unresponsive to stimuli [Recovering/Resolving]
